FAERS Safety Report 18405513 (Version 3)
Quarter: 2022Q2

REPORT INFORMATION
  Report Type: Spontaneous
  Country: US (occurrence: US)
  Receive Date: 20201020
  Receipt Date: 20220624
  Transmission Date: 20220721
  Serious: No
  Sender: FDA-Public Use
  Company Number: US-TEVA-2020-US-1839236

PATIENT
  Sex: Male

DRUGS (1)
  1. ALBUTEROL SULFATE [Suspect]
     Active Substance: ALBUTEROL SULFATE
     Indication: Product used for unknown indication

REACTIONS (5)
  - Device ineffective [Unknown]
  - Device malfunction [Unknown]
  - Product after taste [Unknown]
  - Product quality issue [Unknown]
  - Device delivery system issue [Unknown]
